FAERS Safety Report 26087654 (Version 1)
Quarter: 2025Q4

REPORT INFORMATION
  Report Type: Spontaneous
  Country: RU (occurrence: RU)
  Receive Date: 20251125
  Receipt Date: 20251125
  Transmission Date: 20260118
  Serious: Yes (Hospitalization)
  Sender: ROCHE
  Company Number: RU-ROCHE-10000440649

PATIENT
  Sex: Male

DRUGS (1)
  1. ATEZOLIZUMAB [Suspect]
     Active Substance: ATEZOLIZUMAB
     Indication: Small cell carcinoma
     Route: 065
     Dates: start: 20251007

REACTIONS (5)
  - Asthenia [Unknown]
  - Leukocytosis [Unknown]
  - Dyspnoea exertional [Unknown]
  - Pyrexia [Unknown]
  - Cough [Unknown]
